FAERS Safety Report 7473638-5 (Version None)
Quarter: 2011Q1

REPORT INFORMATION
  Report Type: 
  Country: None (occurrence: None)
  Receive Date: 20110302
  Receipt Date: 20100928
  Transmission Date: 20110831
  Serious: Yes (Death, Life-Threatening, Hospitalization, Disabling)
  Sender: FDA-Public Use
  Company Number: 163-21880-10070407

PATIENT
  Age: 76 Year
  Sex: Male

DRUGS (13)
  1. REVLIMID [Suspect]
     Indication: MULTIPLE MYELOMA
     Dosage: 25 MG, DAILY X DAYS 1-21, PO
     Route: 048
     Dates: start: 20071211, end: 20100621
  2. AMLODIPINE [Concomitant]
  3. MORPHINE SULFATE INJ [Concomitant]
  4. SIMVASTATIN [Concomitant]
  5. FUROSEMIDE [Concomitant]
  6. GLIPIZIDE [Concomitant]
  7. ASPIRIN [Concomitant]
  8. MULTIVITAMIN [Concomitant]
  9. SERTRALINE HCL (SERTRALINE HYDROCHLORIDE) [Concomitant]
  10. DEXAMETHASONE [Suspect]
     Indication: MULTIPLE MYELOMA
     Dosage: 40 MG, DAYS 1-4 Q THURSDAY
     Dates: start: 20071116, end: 20100621
  11. SPIRONOLACTONE [Concomitant]
  12. ARICEPT [Concomitant]
  13. ACETAMINOPHEN [Concomitant]

REACTIONS (6)
  - DIABETES MELLITUS [None]
  - MULTIPLE MYELOMA [None]
  - RENAL FAILURE [None]
  - SEPSIS [None]
  - PNEUMONIA [None]
  - DIABETES WITH HYPEROSMOLARITY [None]
